FAERS Safety Report 23849556 (Version 1)
Quarter: 2024Q2

REPORT INFORMATION
  Report Type: Spontaneous
  Country: DE (occurrence: DE)
  Receive Date: 20240513
  Receipt Date: 20240513
  Transmission Date: 20240715
  Serious: Yes (Congenital Anomaly)
  Sender: FDA-Public Use
  Company Number: DE-EMBRYOTOX-202304392

PATIENT
  Sex: Male
  Weight: 3.475 kg

DRUGS (6)
  1. CANDESARTAN [Suspect]
     Active Substance: CANDESARTAN
     Indication: Hypertension
     Dosage: 4 MILLIGRAM, QD (4 [MG/D ]/ LACK OF KNOWLEDGE ABOUT PREGNANCY UNTIL GW 26+3)
     Route: 064
     Dates: start: 20220701, end: 20230102
  2. FOLIC ACID [Concomitant]
     Active Substance: FOLIC ACID
     Indication: Prophylaxis of neural tube defect
     Dosage: UNK
     Route: 064
     Dates: start: 20230102, end: 20230422
  3. METHYLDOPA [Concomitant]
     Active Substance: METHYLDOPA
     Indication: Hypertension
     Dosage: 125 [MG/D ]
     Route: 064
     Dates: start: 20230102, end: 20230422
  4. IBUPROFEN [Concomitant]
     Active Substance: IBUPROFEN
     Indication: Headache
     Dosage: 400 [MG/D ]/ IN 11/22, 400 MG AS NEEDED
     Route: 064
     Dates: start: 202211
  5. Comirnaty original + omicron BA.4/BA.5 [Concomitant]
     Indication: COVID-19 immunisation
     Dosage: 3. VACCINATION
     Route: 064
     Dates: start: 20220927, end: 20220927
  6. BOOSTRIX POLIO [Concomitant]
     Active Substance: DIPHTHERIA AND TETANUS TOXOIDS AND ACELLULAR PERTUSSIS ADSORBED AND INACTIVATED POLIOVIRUS VACCINE
     Indication: Immunisation
     Dosage: UNK
     Route: 064
     Dates: start: 20230131, end: 20230131

REACTIONS (4)
  - Congenital skin dimples [Unknown]
  - Cranial sutures widening [Unknown]
  - Pyelocaliectasis [Unknown]
  - Foetal exposure during pregnancy [Unknown]
